FAERS Safety Report 5089690-0 (Version None)
Quarter: 2006Q3

REPORT INFORMATION
  Report Type: 
  Country: None (occurrence: None)
  Receive Date: 20060828
  Receipt Date: 20060823
  Transmission Date: 20061208
  Serious: Yes (Other)
  Sender: FDA-Public Use
  Company Number: US-JNJFOC-20060701455

PATIENT
  Sex: Male
  Weight: 59.42 kg

DRUGS (6)
  1. REMICADE [Suspect]
     Dosage: THIRD INFUSION
     Route: 042
  2. REMICADE [Suspect]
     Dosage: SECOND INFUSION
     Route: 042
  3. REMICADE [Suspect]
     Indication: RHEUMATOID ARTHRITIS
     Dosage: FIRST INFUSION
     Route: 042
  4. AVAPRO [Concomitant]
     Indication: BLOOD PRESSURE
  5. METHOTREXATE [Concomitant]
     Indication: RHEUMATOID ARTHRITIS
  6. PREDNISONE [Concomitant]
     Indication: RHEUMATOID ARTHRITIS

REACTIONS (6)
  - ARTHRALGIA [None]
  - BLOOD PRESSURE DECREASED [None]
  - FALL [None]
  - INFUSION RELATED REACTION [None]
  - RASH [None]
  - URTICARIA [None]
